FAERS Safety Report 8997095 (Version 1)
Quarter: 2013Q1

REPORT INFORMATION
  Report Type: Spontaneous
  Country: US (occurrence: None)
  Receive Date: 20130102
  Receipt Date: 20130102
  Transmission Date: 20140127
  Serious: Yes (Hospitalization)
  Sender: FDA-Public Use
  Company Number: None

PATIENT
  Age: 72 Year
  Sex: Male
  Weight: 135 kg

DRUGS (1)
  1. DABIGATRAN [Suspect]
     Dosage: 150 MG Q12H PO
     Route: 048
     Dates: start: 20120613, end: 20121224

REACTIONS (2)
  - Lower gastrointestinal haemorrhage [None]
  - Rectal haemorrhage [None]
